FAERS Safety Report 16993705 (Version 2)
Quarter: 2019Q4

REPORT INFORMATION
  Report Type: Spontaneous
  Country: HR (occurrence: HR)
  Receive Date: 20191105
  Receipt Date: 20191126
  Transmission Date: 20200122
  Serious: Yes (Death, Hospitalization)
  Sender: FDA-Public Use
  Company Number: HR-CELLTRION INC.-2019HR025994

PATIENT

DRUGS (5)
  1. ALTEPLASE. [Concomitant]
     Active Substance: ALTEPLASE
     Indication: THROMBOSIS
  2. REMICADE [Suspect]
     Active Substance: INFLIXIMAB
     Indication: KAWASAKI^S DISEASE
     Dosage: 5 MG/KG, ON TWO OCCASSIONS 14 DAYS APART
  3. CYCLOSPORINE. [Concomitant]
     Active Substance: CYCLOSPORINE
  4. ASPIRINE [Concomitant]
     Active Substance: ASPIRIN
     Indication: KAWASAKI^S DISEASE
  5. HEPARIN [Concomitant]
     Active Substance: HEPARIN SODIUM
     Indication: PROPHYLAXIS

REACTIONS (11)
  - Decreased appetite [Unknown]
  - Troponin increased [Unknown]
  - Cardiac failure [Unknown]
  - Death [Fatal]
  - Condition aggravated [Unknown]
  - Vomiting [Unknown]
  - Bradycardia [Unknown]
  - Respiratory arrest [Unknown]
  - Congestive cardiomyopathy [Unknown]
  - Product use issue [Unknown]
  - Product use in unapproved indication [Unknown]
